FAERS Safety Report 7620493-6 (Version None)
Quarter: 2011Q3

REPORT INFORMATION
  Report Type: 
  Country: None (occurrence: None)
  Receive Date: 20110719
  Receipt Date: 20110713
  Transmission Date: 20111222
  Serious: Yes (Life-Threatening, Hospitalization, Disabling)
  Sender: FDA-Public Use
  Company Number: DK-SANOFI-AVENTIS-2011SA017491

PATIENT
  Age: 67 Year
  Sex: Male

DRUGS (3)
  1. AVASTIN [Suspect]
     Indication: RECTAL CANCER
  2. OXALIPLATIN [Suspect]
     Indication: RECTAL CANCER
     Route: 042
     Dates: start: 20101221
  3. XELODA [Suspect]
     Indication: RECTAL CANCER

REACTIONS (3)
  - INFECTIOUS PERITONITIS [None]
  - RECTAL PERFORATION [None]
  - LARGE INTESTINE PERFORATION [None]
